FAERS Safety Report 8293738-X (Version None)
Quarter: 2012Q2

REPORT INFORMATION
  Report Type: 
  Country: None (occurrence: None)
  Receive Date: 20120413
  Receipt Date: 20120406
  Transmission Date: 20120825
  Serious: Yes (Hospitalization)
  Sender: FDA-Public Use
  Company Number: ACO_29991_2012

PATIENT
  Age: 77 Year
  Sex: Male
  Weight: 56.7 kg

DRUGS (1)
  1. AMPYRA [Suspect]
     Indication: PRODUCT USED FOR UNKNOWN INDICATION
     Dosage: 10 MG, BID, ORAL
     Route: 048
     Dates: end: 20120201

REACTIONS (2)
  - PNEUMONIA [None]
  - DIARRHOEA [None]
